FAERS Safety Report 5928739-7 (Version None)
Quarter: 2008Q4

REPORT INFORMATION
  Report Type: 
  Country: None (occurrence: None)
  Receive Date: 20081023
  Receipt Date: 20071204
  Transmission Date: 20090506
  Serious: Yes (Other)
  Sender: FDA-Public Use
  Company Number: US-MERCK-0712USA01544

PATIENT
  Sex: Female

DRUGS (2)
  1. FOSAMAX [Suspect]
     Route: 048
     Dates: start: 20050101
  2. BONIVA [Suspect]
     Route: 065
     Dates: start: 20060301

REACTIONS (4)
  - ABDOMINAL DISCOMFORT [None]
  - ANAL CANCER [None]
  - BONE DENSITY DECREASED [None]
  - DYSPEPSIA [None]
